FAERS Safety Report 13070659 (Version 2)
Quarter: 2017Q1

REPORT INFORMATION
  Report Type: Spontaneous
  Country: JP (occurrence: JP)
  Receive Date: 20161229
  Receipt Date: 20170119
  Transmission Date: 20170428
  Serious: Yes (Other)
  Sender: FDA-Public Use
  Company Number: JP-TAKEDA-2016TJP028211

PATIENT
  Age: 61 Year
  Sex: Male

DRUGS (3)
  1. ACTOS [Suspect]
     Active Substance: PIOGLITAZONE HYDROCHLORIDE
     Indication: DIABETES MELLITUS
     Dosage: UNK
     Route: 048
  2. RENIVACE [Concomitant]
     Active Substance: ENALAPRIL
     Dosage: UNK
     Route: 048
  3. METGLUCO [Concomitant]
     Active Substance: METFORMIN HYDROCHLORIDE
     Dosage: UNK
     Route: 048

REACTIONS (1)
  - Bile duct cancer [Unknown]
